FAERS Safety Report 10715244 (Version 2)
Quarter: 2015Q1

REPORT INFORMATION
  Report Type: Report from Study
  Country: CN (occurrence: CN)
  Receive Date: 20150116
  Receipt Date: 20150122
  Transmission Date: 20150721
  Serious: Yes (Other)
  Sender: FDA-Public Use
  Company Number: CN-ROCHE-1521182

PATIENT

DRUGS (2)
  1. ALTEPLASE [Suspect]
     Active Substance: ALTEPLASE
     Indication: ISCHAEMIC STROKE
     Dosage: NOT EXCEEDING 90 MG, 10% AS BOLUS,
     Route: 040
  2. ALTEPLASE [Suspect]
     Active Substance: ALTEPLASE
     Dosage: NOT EXCEEDING 90 MG, THE REMAINDER AS CONTINUOUS INFUSION OVER 60 MIN
     Route: 041

REACTIONS (1)
  - Neurological decompensation [Unknown]
